FAERS Safety Report 4699283-2 (Version None)
Quarter: 2005Q2

REPORT INFORMATION
  Report Type: 
  Country: None (occurrence: None)
  Receive Date: 20050624
  Receipt Date: 20050524
  Transmission Date: 20051028
  Serious: Yes (Other)
  Sender: FDA-Public Use
  Company Number: US-GLAXOSMITHKLINE-A0559914A

PATIENT
  Age: 16 Year
  Sex: Female
  Weight: 59.1 kg

DRUGS (4)
  1. WELLBUTRIN XL [Suspect]
     Indication: DEPRESSION
     Route: 048
     Dates: start: 20050215, end: 20050409
  2. GEODON [Concomitant]
  3. PROVIGIL [Concomitant]
     Dosage: 200MG PER DAY
     Route: 048
  4. AMBIEN [Concomitant]
     Route: 048

REACTIONS (3)
  - DRUG INEFFECTIVE [None]
  - FALL [None]
  - GRAND MAL CONVULSION [None]
